FAERS Safety Report 6196503-2 (Version None)
Quarter: 2009Q2

REPORT INFORMATION
  Report Type: 
  Country: None (occurrence: None)
  Receive Date: 20090518
  Receipt Date: 20090518
  Transmission Date: 20091009
  Serious: Yes (Other)
  Sender: FDA-Public Use
  Company Number: None

PATIENT
  Age: 34 Year
  Sex: Female
  Weight: 113.3993 kg

DRUGS (1)
  1. TIGECIL 50MG WYETH [Suspect]
     Indication: INFECTION
     Dosage: 50MG EVERY 12 HOURS IV
     Route: 042
     Dates: start: 20090513, end: 20090514

REACTIONS (2)
  - RASH [None]
  - RESPIRATORY DISORDER [None]
